FAERS Safety Report 8991944 (Version 1)
Quarter: 2012Q4

REPORT INFORMATION
  Report Type: 
  Country: GB (occurrence: GB)
  Receive Date: 20121231
  Receipt Date: 20121231
  Transmission Date: 20130627
  Serious: Yes (Other)
  Sender: FDA-Public Use
  Company Number: GB-BANPHARM-20120386

PATIENT
  Age: 70 Year
  Sex: Female
  Weight: 72.2 kg

DRUGS (8)
  1. IBUPROFEN UNKNOWN PRODUCT [Suspect]
     Dosage: 400 mg, TID,
  2. LOPERAMIDE [Suspect]
     Indication: BOWEL DYSFUNCTION
     Dosage: 2 mg, PRN,
  3. ATORVASTATIN [Suspect]
     Dosage: 80 mg, qd,
  4. CARBAMAZEPINE [Suspect]
     Indication: PAIN RELIEF
     Dosage: 100mg, -,
  5. GLYCERYL TRINITRATE [Suspect]
     Dosage: 400?g, -,
     Route: 060
  6. LANSOPRAZOLE [Suspect]
     Dosage: 30mg, -,
  7. METFORMIN [Suspect]
     Indication: TYPE II DIABETES MELLITUS
     Dosage: 100 mg, BID,
  8. ISOSORBIDE MONONITRATE [Suspect]
     Indication: ISCHEMIC HEART DISEASE PROPHYLAXIS
     Dosage: 1 DF, qd,

REACTIONS (1)
  - Colitis microscopic [Not Recovered/Not Resolved]
